FAERS Safety Report 4632691-4 (Version None)
Quarter: 2005Q2

REPORT INFORMATION
  Report Type: 
  Country: None (occurrence: None)
  Receive Date: 20050412
  Receipt Date: 20050331
  Transmission Date: 20051028
  Serious: Yes (Other)
  Sender: FDA-Public Use
  Company Number: US-JNJFOC-20050400585

PATIENT
  Sex: Female

DRUGS (16)
  1. INFLIXIMAB [Suspect]
     Indication: RHEUMATOID ARTHRITIS
     Route: 042
  2. ACYCLOVIR [Concomitant]
  3. ASPIRIN [Concomitant]
  4. CELEXA [Concomitant]
  5. CLARITIN-D [Concomitant]
  6. ESTROGEN [Concomitant]
  7. LORAZEPAM [Concomitant]
  8. LORTAB [Concomitant]
  9. LORTAB [Concomitant]
  10. PREDNISONE [Concomitant]
  11. TRAZODONE HCL [Concomitant]
  12. LIBREX [Concomitant]
  13. LIBREX [Concomitant]
  14. PEPCID [Concomitant]
  15. VITAMIN C [Concomitant]
  16. VITAMIN E [Concomitant]

REACTIONS (3)
  - ENTEROCOCCAL INFECTION [None]
  - MYCOBACTERIUM CHELONEI INFECTION [None]
  - SCEDOSPORIUM INFECTION [None]
